FAERS Safety Report 5742246-6 (Version None)
Quarter: 2008Q2

REPORT INFORMATION
  Report Type: 
  Country: None (occurrence: None)
  Receive Date: 20080519
  Receipt Date: 20080514
  Transmission Date: 20081010
  Serious: Yes (Death)
  Sender: FDA-Public Use
  Company Number: PHNU2008DE00522

PATIENT
  Age: 52 Year
  Sex: Female
  Weight: 65 kg

DRUGS (35)
  1. ANTIBIOTICS [Suspect]
  2. CELLCEPT [Concomitant]
     Indication: HEART AND LUNG TRANSPLANT
     Dates: start: 20071101
  3. METHYLPREDNISOLONE [Concomitant]
     Indication: HEART AND LUNG TRANSPLANT
     Dosage: 1G/500MG
     Route: 042
     Dates: start: 20071113, end: 20071114
  4. SANDIMMUNE [Suspect]
     Indication: HEART AND LUNG TRANSPLANT
     Dosage: 0.5 MG/KG, QD
     Route: 042
     Dates: start: 20071113, end: 20071114
  5. HEPARIN [Concomitant]
  6. POTASSIUM CHLORIDE [Concomitant]
     Dosage: 1M
     Dates: start: 20071113, end: 20071114
  7. INSULIN [Concomitant]
     Dosage: 50IE/50
     Dates: start: 20071113, end: 20071114
  8. MIDAZOLAM HCL [Concomitant]
     Dates: start: 20071114, end: 20071114
  9. TRIS [Concomitant]
     Dates: start: 20071113, end: 20071113
  10. ROCURONIUM BROMIDE [Concomitant]
     Dosage: 50MG/5
     Dates: start: 20071113, end: 20071113
  11. FUROSEMIDE [Concomitant]
     Dosage: 20MG/2
     Dates: start: 20071113, end: 20071114
  12. AMIODARONE HCL [Concomitant]
     Dosage: 300MG/6
     Dates: start: 20071114, end: 20071114
  13. VASOPRESSIN INJECTION [Concomitant]
     Dosage: 2IE71
     Dates: start: 20071114, end: 20071114
  14. ALBUMIN (HUMAN) [Concomitant]
     Dates: start: 20071114, end: 20071114
  15. ACETYLSALICYLIC ACID SRT [Concomitant]
     Route: 048
     Dates: start: 20071114, end: 20071114
  16. VITAMIN K1 [Concomitant]
     Dosage: 20MG/1
     Route: 048
     Dates: start: 20071114, end: 20071114
  17. GELAFUSAL-N IN RINGERACETAT [Concomitant]
     Dates: start: 20071113, end: 20071114
  18. SODIUM CHLORIDE [Concomitant]
     Dosage: UNK, UNK
     Dates: start: 20071114, end: 20071114
  19. GLUCOSE [Concomitant]
     Dates: start: 20071115
  20. CALCIUM [Concomitant]
     Dates: start: 20071114, end: 20071114
  21. PIRITRAMIDE [Concomitant]
     Dosage: 3MG/2
     Dates: start: 20071113, end: 20071114
  22. PANTOPRAZOLE SODIUM [Concomitant]
     Dosage: 40MG/10
     Dates: start: 20071113, end: 20071114
  23. MYCOPHENOLATE MOFETIL [Concomitant]
     Dosage: 500MG/85KL
     Dates: start: 20071114
  24. COLISTIN SULFATE [Concomitant]
     Dates: start: 20071114
  25. AMPHOTERICIN B [Concomitant]
     Dates: start: 20071114
  26. JONOSTERIL [Concomitant]
     Dosage: 1000ML
     Dates: start: 20071113
  27. FLOXACILLIN SODIUM [Concomitant]
     Indication: PROPHYLAXIS
     Dosage: 2 G, TID
     Route: 042
     Dates: start: 20071113, end: 20071118
  28. TOBRAMYCIN [Concomitant]
     Indication: PROPHYLAXIS
     Dosage: 160MG/DAY
     Route: 042
     Dates: start: 20071113, end: 20071118
  29. CYTOMEGALOVIRUS IMMUNE GLOBULIN [Concomitant]
     Indication: PROPHYLAXIS
     Dosage: 5G/DAY
     Route: 042
     Dates: start: 20071113, end: 20071114
  30. NOREPINEPHRINE [Concomitant]
     Dosage: 1MG/50
     Dates: start: 20071113
  31. ELECTROLYTES NOS [Concomitant]
     Dosage: 1 DF, ONCE/SINGLE
     Dates: start: 20071113, end: 20071113
  32. FRESH FROZEN PLASMA [Concomitant]
     Dosage: 1 DF, ONCE/SINGLE
     Dates: start: 20071115, end: 20071115
  33. PROPOFOL [Suspect]
     Indication: HEART AND LUNG TRANSPLANT
     Dosage: 400MG/H
     Route: 042
     Dates: start: 20071113, end: 20071114
  34. CEFTAZIDIME [Concomitant]
     Indication: PROPHYLAXIS
     Dates: start: 20071113, end: 20071118
  35. CEFTAZIDIME [Concomitant]
     Dosage: 2 G, TID
     Route: 042
     Dates: start: 20071113, end: 20071118

REACTIONS (8)
  - ARRHYTHMIA [None]
  - CARDIAC FAILURE [None]
  - DRUG INTERACTION [None]
  - HAEMORRHAGE INTRACRANIAL [None]
  - HYPERKALAEMIA [None]
  - MYOGLOBIN BLOOD INCREASED [None]
  - RHABDOMYOLYSIS [None]
  - TROPONIN I INCREASED [None]
